FAERS Safety Report 6284697-X (Version None)
Quarter: 2009Q3

REPORT INFORMATION
  Report Type: 
  Country: None (occurrence: None)
  Receive Date: 20090727
  Receipt Date: 20090717
  Transmission Date: 20100115
  Serious: Yes (Disabling)
  Sender: FDA-Public Use
  Company Number: GB-ABBOTT-09P-167-0585960-00

PATIENT
  Age: 19 Year
  Sex: Male

DRUGS (1)
  1. EPILIM TABLETS [Suspect]
     Indication: EPILEPSY
     Route: 048

REACTIONS (3)
  - EMOTIONAL DISTRESS [None]
  - FATIGUE [None]
  - HALLUCINATION [None]
